FAERS Safety Report 7446397-X (Version None)
Quarter: 2011Q2

REPORT INFORMATION
  Report Type: 
  Country: None (occurrence: None)
  Receive Date: 20110429
  Receipt Date: 20100902
  Transmission Date: 20111010
  Serious: No
  Sender: FDA-Public Use
  Company Number: US-ASTRAZENECA-2010SE41486

PATIENT
  Sex: Female

DRUGS (4)
  1. NEXIUM [Suspect]
     Route: 048
     Dates: start: 20100901
  2. LEXAPRO [Concomitant]
  3. ASPIRIN [Concomitant]
  4. NAPROXEN (ALEVE) [Concomitant]

REACTIONS (5)
  - LETHARGY [None]
  - FEELING COLD [None]
  - NAUSEA [None]
  - DYSPHAGIA [None]
  - WRONG DRUG ADMINISTERED [None]
